FAERS Safety Report 6683553-2 (Version None)
Quarter: 2010Q2

REPORT INFORMATION
  Report Type: 
  Country: None (occurrence: None)
  Receive Date: 20100413
  Receipt Date: 20100401
  Transmission Date: 20101027
  Serious: Yes (Other)
  Sender: FDA-Public Use
  Company Number: 1000013054

PATIENT
  Sex: Female

DRUGS (5)
  1. ESCITALOPRAM [Suspect]
     Indication: DEPRESSION
     Dosage: 10 MG (10 MG, 1 IN 1 D), ORAL; 20 MG (20 MG, 1 IN 1 D), ORAL
     Route: 048
     Dates: start: 20091214, end: 20091227
  2. ESCITALOPRAM [Suspect]
     Indication: DEPRESSION
     Dosage: 10 MG (10 MG, 1 IN 1 D), ORAL; 20 MG (20 MG, 1 IN 1 D), ORAL
     Route: 048
     Dates: start: 20091228
  3. ABILIFY [Concomitant]
  4. XANAX [Concomitant]
  5. MEPRONIZINE [Concomitant]

REACTIONS (5)
  - ARTHRALGIA [None]
  - DYSPHONIA [None]
  - HEADACHE [None]
  - MYALGIA [None]
  - VASCULITIS [None]
